FAERS Safety Report 7267326-8 (Version None)
Quarter: 2011Q1

REPORT INFORMATION
  Report Type: 
  Country: None (occurrence: None)
  Receive Date: 20110201
  Receipt Date: 20100302
  Transmission Date: 20110831
  Serious: No
  Sender: FDA-Public Use
  Company Number: A0843485A

PATIENT
  Age: 73 Year
  Sex: Female

DRUGS (9)
  1. BACLOFEN [Concomitant]
  2. FUROSEMIDE INTENSOL [Concomitant]
  3. BYSTOLIC [Concomitant]
  4. CIPRO [Concomitant]
  5. ARIXTRA [Suspect]
     Dosage: 7.5MG PER DAY
     Route: 058
  6. DYE [Suspect]
     Route: 065
  7. UNKNOWN MEDICATION [Concomitant]
  8. SINGULAIR [Concomitant]
  9. LYRICA [Concomitant]

REACTIONS (3)
  - HYPERSENSITIVITY [None]
  - ADVERSE DRUG REACTION [None]
  - RASH GENERALISED [None]
